FAERS Safety Report 22644469 (Version 3)
Quarter: 2023Q4

REPORT INFORMATION
  Report Type: Spontaneous
  Country: US (occurrence: US)
  Receive Date: 20230627
  Receipt Date: 20231204
  Transmission Date: 20240110
  Serious: Yes (Other)
  Sender: FDA-Public Use
  Company Number: US-BRISTOL-MYERS SQUIBB COMPANY-2023-089604

PATIENT
  Age: 55 Year
  Sex: Female
  Weight: 98.88 kg

DRUGS (3)
  1. REVLIMID [Suspect]
     Active Substance: LENALIDOMIDE
     Indication: Plasma cell myeloma
     Route: 048
  2. REVLIMID [Suspect]
     Active Substance: LENALIDOMIDE
     Dosage: FREQ-3 WEEK ON 1 WEEK OFF
     Route: 048
  3. REVLIMID [Suspect]
     Active Substance: LENALIDOMIDE
     Dosage: FREQ-21D ON 7D OFF
     Route: 048

REACTIONS (9)
  - Blood pressure abnormal [Unknown]
  - Paraesthesia [Unknown]
  - Body temperature increased [Unknown]
  - Abscess [Unknown]
  - Peripheral swelling [Unknown]
  - Dizziness [Unknown]
  - Insomnia [Unknown]
  - Agitation [Unknown]
  - Neutropenia [Unknown]
